FAERS Safety Report 9207341 (Version 1)
Quarter: 2013Q1

REPORT INFORMATION
  Report Type: Spontaneous
  Country: US (occurrence: None)
  Receive Date: 20120817
  Receipt Date: 20120817
  Transmission Date: 20140127
  Serious: Yes (Other)
  Sender: FDA-Public Use
  Company Number: ADR-2012-00243

PATIENT
  Sex: Female

DRUGS (2)
  1. BACLOFEN [Suspect]
     Indication: MUSCLE SPASTICITY
     Route: 037
     Dates: start: 20120112
  2. BACLOFEN [Suspect]
     Indication: MULTIPLE SCLEROSIS
     Route: 037
     Dates: start: 20120112

REACTIONS (1)
  - Therapeutic response decreased [None]
